FAERS Safety Report 14568277 (Version 1)
Quarter: 2018Q1

REPORT INFORMATION
  Report Type: Spontaneous
  Country: US (occurrence: US)
  Receive Date: 20180223
  Receipt Date: 20180223
  Transmission Date: 20180509
  Serious: No
  Sender: FDA-Public Use
  Company Number: US-TEVA-2018-US-853730

PATIENT
  Sex: Female

DRUGS (3)
  1. ESTRADIOL VAGINAL INSERTS [Suspect]
     Active Substance: ESTRADIOL
     Indication: VAGINAL ODOUR
     Dates: start: 20180110, end: 20180116
  2. ESTRADIOL VAGINAL INSERTS [Suspect]
     Active Substance: ESTRADIOL
     Indication: VAGINAL DISCHARGE
  3. ESTRADIOL VAGINAL INSERTS [Suspect]
     Active Substance: ESTRADIOL
     Indication: PELVIC PROLAPSE

REACTIONS (6)
  - Thought blocking [Unknown]
  - Chest discomfort [Unknown]
  - Hypertension [Unknown]
  - Hypoaesthesia [Unknown]
  - Dizziness [Unknown]
  - Feeling abnormal [Unknown]

NARRATIVE: CASE EVENT DATE: 20180117
